FAERS Safety Report 25520619 (Version 1)
Quarter: 2025Q3

REPORT INFORMATION
  Report Type: Spontaneous
  Country: US (occurrence: US)
  Receive Date: 20250705
  Receipt Date: 20250705
  Transmission Date: 20251021
  Serious: No
  Sender: AUROBINDO
  Company Number: US-AUROBINDO-AUR-APL-2024-053128

PATIENT
  Sex: Male

DRUGS (1)
  1. VALACYCLOVIR HYDROCHLORIDE [Suspect]
     Active Substance: VALACYCLOVIR HYDROCHLORIDE
     Indication: Herpes virus infection
     Route: 065
     Dates: start: 2009

REACTIONS (3)
  - Product administration error [Unknown]
  - Wrong technique in product usage process [Unknown]
  - Adverse drug reaction [Unknown]
